FAERS Safety Report 20720881 (Version 3)
Quarter: 2022Q3

REPORT INFORMATION
  Report Type: Report from Study
  Country: FR (occurrence: FR)
  Receive Date: 20220418
  Receipt Date: 20220907
  Transmission Date: 20221026
  Serious: Yes (Hospitalization, Other)
  Sender: FDA-Public Use
  Company Number: FR-TAKEDA-2022TUS024698

PATIENT
  Age: 53 Year
  Sex: Male
  Weight: 72 kg

DRUGS (32)
  1. MARIBAVIR [Suspect]
     Active Substance: MARIBAVIR
     Indication: Cytomegalovirus infection
     Dosage: 400 MILLIGRAM, BID
     Route: 048
     Dates: start: 20220216
  2. CYTOTEC [Suspect]
     Active Substance: MISOPROSTOL
     Indication: Cytomegalovirus infection
     Dosage: 4 MILLILITRE PER KILOGRAM, 2/WEEK
     Route: 065
     Dates: start: 20220210
  3. CYTOTEC [Suspect]
     Active Substance: MISOPROSTOL
     Dosage: 5000 INTERNATIONAL UNIT, 2/WEEK
     Route: 042
     Dates: start: 20220210
  4. BACTRIM [Suspect]
     Active Substance: SULFAMETHOXAZOLE\TRIMETHOPRIM
     Indication: Pneumocystis jirovecii pneumonia
     Dosage: 400 INTERNATIONAL UNIT, TID
     Route: 042
     Dates: start: 20220407
  5. EVEROLIMUS [Concomitant]
     Active Substance: EVEROLIMUS
     Indication: Immunosuppression
     Dosage: 1.5 MILLIGRAM, BID
     Route: 048
     Dates: start: 20220129
  6. TACROLIMUS [Concomitant]
     Active Substance: TACROLIMUS
     Indication: Immunosuppression
     Dosage: 5 MILLIGRAM, BID
     Route: 048
  7. PREDNISONE [Concomitant]
     Active Substance: PREDNISONE
     Indication: Immunosuppression
     Dosage: 5 MILLIGRAM, QD
     Route: 048
     Dates: start: 20210909
  8. PREDNISONE [Concomitant]
     Active Substance: PREDNISONE
     Dosage: 40 MILLIGRAM, QD
     Route: 048
     Dates: start: 20220415, end: 20220418
  9. PREDNISONE [Concomitant]
     Active Substance: PREDNISONE
     Dosage: 80 MILLIGRAM, QD
     Route: 048
     Dates: start: 20220419
  10. MYCOPHENOLIC ACID [Concomitant]
     Active Substance: MYCOPHENOLIC ACID
     Indication: Immunosuppression
     Dosage: 5 MILLIGRAM, QD
     Route: 048
     Dates: start: 20211123
  11. MELATONIN [Concomitant]
     Active Substance: MELATONIN
     Indication: Sleep disorder
     Dosage: 2 MILLIGRAM, QD
     Route: 048
     Dates: start: 20210103
  12. EZETIMIBE [Concomitant]
     Active Substance: EZETIMIBE
     Indication: Dyslipidaemia
     Dosage: 10 MILLIGRAM, QD
     Route: 048
     Dates: start: 20210103, end: 20220306
  13. EZETIMIBE [Concomitant]
     Active Substance: EZETIMIBE
     Dosage: 10 MILLIGRAM, QD
     Route: 048
     Dates: start: 20220309
  14. ATORVASTATIN [Concomitant]
     Active Substance: ATORVASTATIN
     Indication: Dyslipidaemia
     Dosage: 40 MILLIGRAM, QD
     Route: 048
     Dates: start: 20210103, end: 20210306
  15. ATORVASTATIN [Concomitant]
     Active Substance: ATORVASTATIN
     Dosage: 40 MILLIGRAM, QD
     Route: 048
     Dates: start: 20210309
  16. AMITRIPTYLINE HYDROCHLORIDE [Concomitant]
     Active Substance: AMITRIPTYLINE HYDROCHLORIDE
     Indication: Depressive symptom
     Dosage: 25 MILLIGRAM, QD
     Route: 048
     Dates: start: 20220216
  17. CANDESARTAN [Concomitant]
     Active Substance: CANDESARTAN
     Indication: Hypertension
     Dosage: 4 MILLIGRAM, QD
     Route: 048
     Dates: start: 20211123, end: 20220306
  18. ESOMEPRAZOLE [Concomitant]
     Active Substance: ESOMEPRAZOLE
     Indication: Gastrooesophageal reflux disease
     Dosage: 40 MILLIGRAM, QD
     Route: 048
     Dates: start: 20210211, end: 20220306
  19. LOPERAMIDE [Concomitant]
     Active Substance: LOPERAMIDE
     Indication: Nausea
     Dosage: 2 MILLIGRAM, BID
     Route: 048
     Dates: start: 20211022
  20. CHOLECALCIFEROL [Concomitant]
     Active Substance: CHOLECALCIFEROL
     Indication: Vitamin D deficiency
     Dosage: 40 MILLIGRAM
     Route: 048
     Dates: start: 20210118
  21. HUMAN CYTOMEGALOVIRUS IMMUNE GLOBULIN [Concomitant]
     Active Substance: HUMAN CYTOMEGALOVIRUS IMMUNE GLOBULIN
     Indication: Cytomegalovirus infection
     Dosage: 16000 INTERNATIONAL UNIT, 2/MONTH
     Route: 042
     Dates: start: 20220314
  22. HUMAN CYTOMEGALOVIRUS IMMUNE GLOBULIN [Concomitant]
     Active Substance: HUMAN CYTOMEGALOVIRUS IMMUNE GLOBULIN
     Dosage: 5000 INTERNATIONAL UNIT, QD
     Route: 042
     Dates: start: 20220416
  23. SODIUM BICARBONATE [Concomitant]
     Active Substance: SODIUM BICARBONATE
     Indication: Aphthous ulcer
     Dosage: UNK UNK, TID
     Route: 002
     Dates: start: 20220314
  24. PREDNISOLONE [Concomitant]
     Active Substance: PREDNISOLONE
     Indication: Aphthous ulcer
     Dosage: 200 MILLIGRAM, BID
     Route: 002
     Dates: start: 20220307
  25. XYLOCAINE [Concomitant]
     Active Substance: LIDOCAINE HYDROCHLORIDE
     Indication: Aphthous ulcer
     Dosage: UNK UNK, TID
     Route: 002
     Dates: start: 20220309
  26. FUROSEMIDE [Concomitant]
     Active Substance: FUROSEMIDE
     Indication: Product used for unknown indication
     Dosage: 20 MILLIGRAM, QD
     Route: 042
     Dates: start: 20220416
  27. INSULIN ASPART [Concomitant]
     Active Substance: INSULIN ASPART
     Indication: Diabetes mellitus
     Dosage: 100 INTERNATIONAL UNIT, TID
     Route: 058
     Dates: start: 20220416
  28. HEPARIN [Concomitant]
     Active Substance: HEPARIN SODIUM
     Indication: Vitamin D deficiency
     Dosage: 5000 INTERNATIONAL UNIT
     Route: 058
     Dates: start: 20210118
  29. NEFOPAM [Concomitant]
     Active Substance: NEFOPAM
     Indication: Pain
     Dosage: 20 MILLIGRAM
     Route: 048
     Dates: start: 20220408
  30. LEUCOVORIN CALCIUM [Concomitant]
     Active Substance: LEUCOVORIN CALCIUM
     Indication: Antibiotic prophylaxis
     Dosage: 10 MILLIGRAM, QD
     Route: 048
     Dates: start: 20220413
  31. Calcidose [Concomitant]
     Indication: Calcium deficiency
     Dosage: 500 MILLIGRAM, QD
     Route: 048
     Dates: start: 20220412
  32. AMPHOTERICIN B [Concomitant]
     Active Substance: AMPHOTERICIN B
     Indication: Fungal infection
     Dosage: 10 MILLIGRAM, QD
     Route: 048
     Dates: start: 20220412

REACTIONS (5)
  - Pneumocystis jirovecii pneumonia [Recovered/Resolved]
  - Hypoxia [Recovered/Resolved]
  - Acute kidney injury [Recovered/Resolved]
  - Pyrexia [Recovered/Resolved]
  - Anaemia [Recovered/Resolved]

NARRATIVE: CASE EVENT DATE: 20220228
